FAERS Safety Report 6564877-6 (Version None)
Quarter: 2010Q1

REPORT INFORMATION
  Report Type: 
  Country: None (occurrence: None)
  Receive Date: 20100201
  Receipt Date: 20100122
  Transmission Date: 20100710
  Serious: Yes (Hospitalization, Other)
  Sender: FDA-Public Use
  Company Number: FR-JNJFOC-20091204386

PATIENT
  Age: 53 Year
  Sex: Female

DRUGS (14)
  1. REMICADE [Suspect]
     Indication: ANKYLOSING SPONDYLITIS
     Dosage: AT THE END OF THE 42TH INFUSION
     Route: 042
  2. REMICADE [Suspect]
     Route: 042
  3. CELEBREX [Suspect]
     Indication: DRUG USE FOR UNKNOWN INDICATION
     Route: 048
  4. FOSAMAX [Concomitant]
     Route: 048
  5. VERAPAMIL [Concomitant]
  6. DEBRIDAT [Concomitant]
     Route: 048
  7. LASILIX [Concomitant]
     Route: 048
  8. LEVOTHYROXINE SODIUM [Concomitant]
     Dosage: DOSE OF 125 MCG (NOTED AS 125 MG)
     Route: 048
  9. XYZAL [Concomitant]
     Route: 048
  10. SULFARLEM [Concomitant]
     Route: 048
  11. NEBILOX [Concomitant]
     Route: 048
  12. NEXIUM [Concomitant]
     Route: 048
  13. LYRICA [Concomitant]
     Route: 048
  14. TOPALGIC [Concomitant]
     Route: 048

REACTIONS (4)
  - CHEST PAIN [None]
  - INFUSION RELATED REACTION [None]
  - PARAESTHESIA [None]
  - TRANSIENT ISCHAEMIC ATTACK [None]
